FAERS Safety Report 9340702 (Version 1)
Quarter: 2013Q2

REPORT INFORMATION
  Report Type: Report from Study
  Country: AT (occurrence: AT)
  Receive Date: 20130610
  Receipt Date: 20130610
  Transmission Date: 20140414
  Serious: Yes (Other)
  Sender: FDA-Public Use
  Company Number: AT-MERCK-1306AUT002661

PATIENT
  Age: 52 Year
  Sex: Female

DRUGS (4)
  1. BOCEPREVIR [Suspect]
     Indication: HEPATITIS C
     Dosage: 4-4-4, QD
     Route: 048
     Dates: start: 20121102
  2. RIBAVIRIN [Suspect]
     Indication: HEPATITIS C
     Dosage: 200MG 2-2-1, 5 IN 1 DAY QD
     Route: 048
     Dates: start: 20120928
  3. RIBAVIRIN [Suspect]
     Dosage: 800 MG, QD
     Route: 048
  4. PEGINTERFERON ALFA-2A [Suspect]
     Indication: HEPATITIS C
     Dosage: 180 MICROGRAM, QD
     Route: 058
     Dates: start: 20120928

REACTIONS (1)
  - Pancytopenia [Unknown]
